FAERS Safety Report 5339974-3 (Version None)
Quarter: 2007Q2

REPORT INFORMATION
  Report Type: 
  Country: None (occurrence: None)
  Receive Date: 20070529
  Receipt Date: 20070517
  Transmission Date: 20071010
  Serious: Yes (Other)
  Sender: FDA-Public Use
  Company Number: TPA2007A00466

PATIENT
  Age: 66 Year
  Sex: Female
  Weight: 58.9676 kg

DRUGS (3)
  1. ROZEREM [Suspect]
     Indication: INSOMNIA
     Dosage: 8 MG,QHS, PER ORAL
     Route: 048
     Dates: start: 20070216, end: 20070306
  2. TYLENOL PM  (DIPHENYDRAMINE, PARACETAMOL) [Concomitant]
  3. ALEVE PM (NAPROXEN SODIUM) [Concomitant]

REACTIONS (5)
  - AXILLARY PAIN [None]
  - CHEST PAIN [None]
  - DRUG INEFFECTIVE [None]
  - HEART RATE IRREGULAR [None]
  - INSOMNIA [None]
